FAERS Safety Report 23934291 (Version 1)
Quarter: 2024Q2

REPORT INFORMATION
  Report Type: Spontaneous
  Country: CN (occurrence: CN)
  Receive Date: 20240603
  Receipt Date: 20240603
  Transmission Date: 20240715
  Serious: Yes (Other)
  Sender: FDA-Public Use
  Company Number: CN-002147023-NVSC2024CN116092

PATIENT
  Age: 88 Year
  Sex: Female

DRUGS (6)
  1. SACUBITRIL\VALSARTAN [Suspect]
     Active Substance: SACUBITRIL\VALSARTAN
     Indication: Ventricular remodelling
     Dosage: 25 MG, BID
     Route: 048
     Dates: start: 20240505, end: 20240510
  2. DESLANOSIDE [Concomitant]
     Active Substance: DESLANOSIDE
     Indication: Cardiac disorder
     Dosage: 0.2 MG (ONCE)
     Route: 042
  3. FUROSEMIDE [Concomitant]
     Active Substance: FUROSEMIDE
     Indication: Diuretic therapy
     Dosage: 20 MG, QD
     Route: 048
  4. SPIRONOLACTONE [Concomitant]
     Active Substance: SPIRONOLACTONE
     Indication: Diuretic therapy
     Dosage: 20 MG, QD
     Route: 048
  5. ACARBOSE [Concomitant]
     Active Substance: ACARBOSE
     Indication: Blood glucose increased
     Dosage: 50 MG, TID
     Route: 048
  6. CLOPIDOGREL BISULFATE [Concomitant]
     Active Substance: CLOPIDOGREL BISULFATE
     Indication: Symptomatic treatment
     Dosage: 75 MG, QD
     Route: 048

REACTIONS (3)
  - Hypotension [Recovering/Resolving]
  - Underdose [Unknown]
  - Product use issue [Unknown]

NARRATIVE: CASE EVENT DATE: 20240505
